FAERS Safety Report 7387636-3 (Version None)
Quarter: 2011Q1

REPORT INFORMATION
  Report Type: 
  Country: None (occurrence: None)
  Receive Date: 20110331
  Receipt Date: 20110321
  Transmission Date: 20110831
  Serious: Yes (Other)
  Sender: FDA-Public Use
  Company Number: GR-ABBOTT-10P-066-0649124-00

PATIENT
  Sex: Female

DRUGS (3)
  1. HUMIRA [Suspect]
     Route: 058
     Dates: end: 20100330
  2. HUMIRA [Suspect]
     Route: 058
  3. HUMIRA [Suspect]
     Indication: CROHN'S DISEASE
     Route: 058
     Dates: start: 20090818, end: 20090818

REACTIONS (1)
  - VASCULITIS [None]
